FAERS Safety Report 10021499 (Version 1)
Quarter: 2014Q1

REPORT INFORMATION
  Report Type: Spontaneous
  Country: ES (occurrence: None)
  Receive Date: 20140313
  Receipt Date: 20140313
  Transmission Date: 20141002
  Serious: Yes (Hospitalization)
  Sender: FDA-Public Use
  Company Number: VAL_03026_2014

PATIENT
  Age: 70 Year
  Sex: Male

DRUGS (6)
  1. ROCALTROL [Suspect]
     Indication: HYPOPARATHYROIDISM
     Route: 048
     Dates: start: 20130402, end: 20130516
  2. CALCIUM [Suspect]
     Indication: HYPOPARATHYROIDISM
     Route: 048
     Dates: start: 20130402, end: 20130516
  3. MAGNESIUM [Suspect]
     Indication: PRODUCT USED FOR UNKNOWN INDICATION
     Route: 048
     Dates: start: 20130402, end: 20130516
  4. MERCAPTOPURINE [Concomitant]
  5. EUTIROX [Concomitant]
  6. PENTASA [Concomitant]

REACTIONS (4)
  - Renal failure acute [None]
  - Hypercalcaemia [None]
  - Hypermagnesaemia [None]
  - Drug interaction [None]
